FAERS Safety Report 14746300 (Version 3)
Quarter: 2018Q2

REPORT INFORMATION
  Report Type: Report from Study
  Country: US (occurrence: US)
  Receive Date: 20180411
  Receipt Date: 20180511
  Transmission Date: 20180711
  Serious: Yes (Other)
  Sender: FDA-Public Use
  Company Number: US-JNJFOC-20180313321

PATIENT
  Sex: Male

DRUGS (13)
  1. KLONOPIN [Concomitant]
     Active Substance: CLONAZEPAM
  2. OXYCODONE [Concomitant]
     Active Substance: OXYCODONE
  3. FENTANYL. [Concomitant]
     Active Substance: FENTANYL
  4. IMBRUVICA [Suspect]
     Active Substance: IBRUTINIB
     Indication: CHRONIC LYMPHOCYTIC LEUKAEMIA
     Route: 048
     Dates: start: 20180227, end: 20180419
  5. IMBRUVICA [Suspect]
     Active Substance: IBRUTINIB
     Indication: CHRONIC LYMPHOCYTIC LEUKAEMIA
     Route: 048
     Dates: start: 20180228
  6. LYRICA [Concomitant]
     Active Substance: PREGABALIN
  7. ZYTIGA [Concomitant]
     Active Substance: ABIRATERONE ACETATE
  8. RIFAMPIN. [Concomitant]
     Active Substance: RIFAMPIN
  9. RAPAFLO [Concomitant]
     Active Substance: SILODOSIN
  10. PREDNISONE. [Concomitant]
     Active Substance: PREDNISONE
  11. VENLAFAXINE [Concomitant]
     Active Substance: VENLAFAXINE HYDROCHLORIDE
  12. IMBRUVICA [Suspect]
     Active Substance: IBRUTINIB
     Indication: CHRONIC LYMPHOCYTIC LEUKAEMIA
     Route: 048
     Dates: start: 20180420
  13. AZITHROMYCIN ANHYDROUS. [Concomitant]
     Active Substance: AZITHROMYCIN ANHYDROUS

REACTIONS (8)
  - Stomatitis [Unknown]
  - Contusion [Unknown]
  - Fatigue [Unknown]
  - Haematoma [Unknown]
  - Rash [Unknown]
  - Increased tendency to bruise [Unknown]
  - Spontaneous haemorrhage [Unknown]
  - Skin cancer [Unknown]
